FAERS Safety Report 5374520-X (Version None)
Quarter: 2007Q2

REPORT INFORMATION
  Report Type: 
  Country: None (occurrence: None)
  Receive Date: 20070627
  Receipt Date: 20060512
  Transmission Date: 20071010
  Serious: Yes (Hospitalization)
  Sender: FDA-Public Use
  Company Number: 448146

PATIENT
  Age: 62 Year
  Sex: Male
  Weight: 77.1 kg

DRUGS (6)
  1. XELODA [Suspect]
     Indication: RECTAL CANCER
     Dosage: 1950 MG 2 PER DAY ORAL
     Route: 048
     Dates: start: 20060328, end: 20060505
  2. AVASTIN [Concomitant]
  3. CENTRUM (MINERALS NOS/MULTIVITAMIN NOS) [Concomitant]
  4. VITAMIN B6 [Concomitant]
  5. OXALIPLATIN (OXALIPLATIN) [Concomitant]
  6. LOMOTIL [Concomitant]

REACTIONS (2)
  - DIARRHOEA [None]
  - PYREXIA [None]
